FAERS Safety Report 4921357-9 (Version None)
Quarter: 2006Q1

REPORT INFORMATION
  Report Type: 
  Country: None (occurrence: None)
  Receive Date: 20060222
  Receipt Date: 20060222
  Transmission Date: 20060701
  Serious: Yes (Hospitalization, Other)
  Sender: FDA-Public Use
  Company Number: None

PATIENT
  Sex: Male
  Weight: 78.5 kg

DRUGS (3)
  1. FLUOROURACIL [Suspect]
     Indication: RECTAL CANCER
     Dosage: 3168 MG
     Dates: start: 20060124, end: 20060126
  2. LEUCOVORIN CALCIUM [Suspect]
     Dosage: 792 MG
     Dates: start: 20060124, end: 20060124
  3. ELOXATIN [Suspect]
     Dosage: 168 MG
     Dates: start: 20060124, end: 20060124

REACTIONS (3)
  - CELLULITIS [None]
  - PAIN IN EXTREMITY [None]
  - SKIN ULCER [None]
